FAERS Safety Report 9921612 (Version 1)
Quarter: 2014Q1

REPORT INFORMATION
  Report Type: Spontaneous
  Country: US (occurrence: US)
  Receive Date: 20140225
  Receipt Date: 20140225
  Transmission Date: 20141002
  Serious: No
  Sender: FDA-Public Use
  Company Number: US-PFIZER INC-2014052216

PATIENT
  Age: 49 Year
  Sex: Female

DRUGS (6)
  1. XELJANZ [Suspect]
     Indication: RHEUMATOID ARTHRITIS
     Dosage: 5 MG, 2X/DAY
     Route: 048
     Dates: start: 2013
  2. CELEXA [Concomitant]
     Dosage: 60 MG, UNK
  3. TRAZODONE [Concomitant]
     Dosage: 100 MG, UNK
  4. URSO [Concomitant]
     Dosage: 250 MG, UNK
  5. MORPHINE SULFATE ER [Concomitant]
     Dosage: 30 MG, UNK
  6. CALCIUM + VIT D [Concomitant]
     Dosage: CALCIUM CARBONATE 600 MG, VITAMIN D NOS 400 MG

REACTIONS (1)
  - Fatigue [Unknown]
